FAERS Safety Report 9092774 (Version 1)
Quarter: 2013Q1

REPORT INFORMATION
  Report Type: Report from Study
  Country: US (occurrence: US)
  Receive Date: 20130131
  Receipt Date: 20130131
  Transmission Date: 20140127
  Serious: No
  Sender: FDA-Public Use
  Company Number: US-ABBOTT-12P-163-1002858-00

PATIENT
  Age: 44 Year
  Sex: Female

DRUGS (10)
  1. HUMIRA [Suspect]
     Indication: CROHN^S DISEASE
     Dates: start: 20121019, end: 20121022
  2. IMURAN [Concomitant]
     Indication: PRODUCT USED FOR UNKNOWN INDICATION
  3. PREDNISONE [Concomitant]
     Indication: PRODUCT USED FOR UNKNOWN INDICATION
     Dosage: 15MG DAILY
  4. AMBIEN [Concomitant]
     Indication: INSOMNIA
     Dosage: 12.5MG AS NEEDED
  5. IRON [Concomitant]
     Indication: IRON DEFICIENCY ANAEMIA
  6. SINGULAIR [Concomitant]
     Indication: PRODUCT USED FOR UNKNOWN INDICATION
     Dosage: 10MG DAILY
  7. NEXIUM [Concomitant]
     Indication: PRODUCT USED FOR UNKNOWN INDICATION
     Dosage: 40MG DAILY
  8. ULTRAM [Concomitant]
     Indication: PAIN
     Dosage: 100MG DAILY
  9. DILAUDID [Concomitant]
     Indication: CROHN^S DISEASE
     Dosage: 4MG EVERY 4 HOURS AS NEEDED
  10. MTV WITH CALCIUM AND VITAMIN D [Concomitant]
     Indication: PRODUCT USED FOR UNKNOWN INDICATION

REACTIONS (7)
  - Dizziness [Recovered/Resolved]
  - Nasopharyngitis [Recovered/Resolved]
  - Paraesthesia [Recovered/Resolved]
  - Respiratory rate increased [Recovered/Resolved]
  - Lethargy [Recovered/Resolved]
  - Blood pressure diastolic decreased [Recovered/Resolved]
  - Blood potassium decreased [Recovered/Resolved]
